FAERS Safety Report 17122398 (Version 1)
Quarter: 2019Q4

REPORT INFORMATION
  Report Type: Spontaneous
  Country: US (occurrence: US)
  Receive Date: 20191206
  Receipt Date: 20191206
  Transmission Date: 20200122
  Serious: No
  Sender: FDA-Public Use
  Company Number: US-VERTEX PHARMACEUTICALS-2019-011975

PATIENT
  Age: 12 Year
  Sex: Male
  Weight: 40 kg

DRUGS (9)
  1. HYPERTONIC SALINE SOLUTION [Concomitant]
     Active Substance: SODIUM CHLORIDE
     Dosage: UNK
  2. URSODIOL. [Concomitant]
     Active Substance: URSODIOL
     Dosage: UNK
  3. TRIKAFTA [Suspect]
     Active Substance: ELEXACAFTOR\IVACAFTOR\TEZACAFTOR
     Indication: CYSTIC FIBROSIS
     Dosage: TWO ORANGE TABLETS IN THE MORNING AND ONE BLUE TABLET IN THE EVENING
     Route: 048
     Dates: start: 20191108, end: 20191122
  4. PREVACID [Concomitant]
     Active Substance: LANSOPRAZOLE
     Dosage: 20 MG
  5. CREON [Concomitant]
     Active Substance: PANCRELIPASE AMYLASE\PANCRELIPASE LIPASE\PANCRELIPASE PROTEASE
     Dosage: UNK
  6. MIRALAX [Concomitant]
     Active Substance: POLYETHYLENE GLYCOL 3350
     Dosage: UNK
  7. PULMOZYME [Concomitant]
     Active Substance: DORNASE ALFA
     Dosage: UNK, QD
  8. STRATTERA [Concomitant]
     Active Substance: ATOMOXETINE HYDROCHLORIDE
     Dosage: UNK
  9. LEXAPRO [Concomitant]
     Active Substance: ESCITALOPRAM OXALATE
     Dosage: UNK

REACTIONS (5)
  - Aspartate aminotransferase increased [Unknown]
  - Gamma-glutamyltransferase increased [Unknown]
  - Alanine aminotransferase increased [Unknown]
  - Contusion [Unknown]
  - Blood alkaline phosphatase increased [Unknown]

NARRATIVE: CASE EVENT DATE: 201911
